FAERS Safety Report 5552073-0 (Version None)
Quarter: 2007Q4

REPORT INFORMATION
  Report Type: 
  Country: None (occurrence: None)
  Receive Date: 20071212
  Receipt Date: 20070607
  Transmission Date: 20080405
  Serious: No
  Sender: FDA-Public Use
  Company Number: US-AMGEN-KDL228268

PATIENT
  Sex: Female

DRUGS (3)
  1. ENBREL [Suspect]
     Indication: RHEUMATOID ARTHRITIS
     Dates: start: 20060907, end: 20070201
  2. PLAQUENIL [Concomitant]
     Dates: start: 20060401
  3. METHOTREXATE [Concomitant]
     Dates: start: 20060901

REACTIONS (1)
  - RHEUMATOID ARTHRITIS [None]
